FAERS Safety Report 9575732 (Version 1)
Quarter: 2013Q4

REPORT INFORMATION
  Report Type: Spontaneous
  Country: US (occurrence: US)
  Receive Date: 20131001
  Receipt Date: 20131001
  Transmission Date: 20140711
  Serious: No
  Sender: FDA-Public Use
  Company Number: US-AMGEN-USASP2012036041

PATIENT
  Age: 93 Year
  Sex: Female
  Weight: 62.13 kg

DRUGS (6)
  1. PROCRIT [Suspect]
     Indication: HAEMOGLOBIN DECREASED
     Dosage: UNK
     Route: 058
     Dates: start: 20120606
  2. ZOLOFT [Concomitant]
     Indication: DEPRESSION
     Dosage: 50 MG, QD
     Route: 048
  3. DIOVAN [Concomitant]
     Indication: BLOOD PRESSURE
     Dosage: UNK
     Route: 048
  4. NORVASC [Concomitant]
     Indication: BLOOD PRESSURE
     Dosage: UNK
     Route: 048
  5. AMIODARONE [Concomitant]
     Dosage: UNK
     Route: 048
  6. OSCAL                              /00514701/ [Concomitant]
     Indication: OSTEOPOROSIS
     Dosage: UNK
     Route: 048

REACTIONS (2)
  - Dizziness [Unknown]
  - Headache [Not Recovered/Not Resolved]
